FAERS Safety Report 8095364-4 (Version None)
Quarter: 2012Q1

REPORT INFORMATION
  Report Type: 
  Country: None (occurrence: None)
  Receive Date: 20120131
  Receipt Date: 20120119
  Transmission Date: 20120608
  Serious: Yes (Hospitalization)
  Sender: FDA-Public Use
  Company Number: GB-NOVOPROD-343417

PATIENT
  Age: 56 Year
  Sex: Male

DRUGS (9)
  1. NORDITROPIN [Suspect]
     Indication: BRAIN NEOPLASM
     Dosage: 0.2 MG, QD
     Dates: start: 20111202
  2. ADCAL D3 [Concomitant]
     Dosage: 1 TAB, BID
  3. ACETAMINOPHEN AND CODEINE PHOSPHATE [Concomitant]
  4. SALBUTAMOL                         /00139502/ [Concomitant]
     Dosage: UNK
  5. LEVOTHYROXINE SODIUM [Concomitant]
     Dosage: 125 A?G, QD
     Route: 048
  6. HYDROCORTISONE [Concomitant]
     Dosage: 10 MG, BID
     Route: 048
  7. ZOPICLONE [Concomitant]
     Indication: PAIN
     Dosage: 3.75 MG, UNK
  8. NORDITROPIN [Suspect]
     Dosage: 0.3 MG, QD
     Dates: start: 20111227
  9. HYDROCORTISONE [Concomitant]
     Dosage: EVENING
     Route: 048

REACTIONS (1)
  - CONVULSION [None]
